FAERS Safety Report 7541624-2 (Version None)
Quarter: 2011Q2

REPORT INFORMATION
  Report Type: 
  Country: None (occurrence: None)
  Receive Date: 20110613
  Receipt Date: 20110601
  Transmission Date: 20111010
  Serious: Yes (Hospitalization)
  Sender: FDA-Public Use
  Company Number: GB-JNJFOC-20110601185

PATIENT
  Sex: Male

DRUGS (1)
  1. STELARA [Suspect]
     Indication: PSORIASIS
     Dosage: HAD 2 DOSES- WEEK 0 AND 4
     Route: 058

REACTIONS (2)
  - ABDOMINAL PAIN [None]
  - THROMBOSIS [None]
